FAERS Safety Report 16883493 (Version 1)
Quarter: 2019Q4

REPORT INFORMATION
  Report Type: Report from Study
  Country: None (occurrence: TR)
  Receive Date: 20191004
  Receipt Date: 20191004
  Transmission Date: 20200122
  Serious: Yes (Death)
  Sender: FDA-Public Use
  Company Number: TR-ABBVIE-19K-161-2937260-00

PATIENT
  Age: 66 Year
  Sex: Female
  Weight: 60 kg

DRUGS (2)
  1. MADOPAR HBS [Concomitant]
     Active Substance: BENSERAZIDE HYDROCHLORIDE\LEVODOPA
     Indication: PARKINSON^S DISEASE
     Dosage: 1X2
     Route: 048
  2. DUODOPA [Suspect]
     Active Substance: CARBIDOPA\LEVODOPA
     Indication: PARKINSON^S DISEASE
     Dosage: MORNING DOSE (ML): 7.00 CONTINUOUS DOSE (ML): 5.80 EXTRA DOSE (ML): 0.50, 20 MG/ML 5 MG/ML
     Route: 050
     Dates: start: 20190129

REACTIONS (5)
  - Urinary tract infection [Fatal]
  - C-reactive protein increased [Fatal]
  - Unevaluable event [Fatal]
  - Pyrexia [Fatal]
  - Sepsis [Fatal]

NARRATIVE: CASE EVENT DATE: 20190221
